FAERS Safety Report 5401144-8 (Version None)
Quarter: 2007Q3

REPORT INFORMATION
  Report Type: 
  Country: None (occurrence: None)
  Receive Date: 20070726
  Receipt Date: 20070714
  Transmission Date: 20080115
  Serious: Yes (Hospitalization)
  Sender: FDA-Public Use
  Company Number: 2007PV033129

PATIENT
  Age: 53 Year
  Sex: Female

DRUGS (20)
  1. SYMLIN [Suspect]
     Indication: TYPE 2 DIABETES MELLITUS
     Dosage: 60 MCG; SC;  45 MCG; SC;  30 MCG; SC;   15 MCG;SC
     Route: 058
     Dates: start: 20070516, end: 20070521
  2. SYMLIN [Suspect]
     Indication: TYPE 2 DIABETES MELLITUS
     Dosage: 60 MCG; SC;  45 MCG; SC;  30 MCG; SC;   15 MCG;SC
     Route: 058
     Dates: start: 20070522, end: 20070528
  3. SYMLIN [Suspect]
     Indication: TYPE 2 DIABETES MELLITUS
     Dosage: 60 MCG; SC;  45 MCG; SC;  30 MCG; SC;   15 MCG;SC
     Route: 058
     Dates: start: 20070529, end: 20070604
  4. SYMLIN [Suspect]
     Indication: TYPE 2 DIABETES MELLITUS
     Dosage: 60 MCG; SC;  45 MCG; SC;  30 MCG; SC;   15 MCG;SC
     Route: 058
     Dates: start: 20070605
  5. NITROL [Concomitant]
  6. LIPITOR [Concomitant]
  7. GLUCOPHAGE [Concomitant]
  8. COREG [Concomitant]
  9. DIOVAN [Concomitant]
  10. WELLBUTRIN [Concomitant]
  11. ZOLOFT [Concomitant]
  12. TOPROL-XL [Concomitant]
  13. REQUIP [Concomitant]
  14. AMLODIPINE [Concomitant]
  15. PREVACID [Concomitant]
  16. LYRICA [Concomitant]
  17. KLONOPIN [Concomitant]
  18. XANAX [Concomitant]
  19. LORTAB [Concomitant]
  20. HUMALOG [Concomitant]

REACTIONS (6)
  - ABDOMINAL DISTENSION [None]
  - BLOOD PRESSURE INADEQUATELY CONTROLLED [None]
  - BLOOD PRESSURE INCREASED [None]
  - CHEST PAIN [None]
  - DYSPNOEA [None]
  - PANIC ATTACK [None]
